FAERS Safety Report 5316265-8 (Version None)
Quarter: 2007Q2

REPORT INFORMATION
  Report Type: 
  Country: None (occurrence: None)
  Receive Date: 20070430
  Receipt Date: 20070418
  Transmission Date: 20071010
  Serious: Yes (Hospitalization)
  Sender: FDA-Public Use
  Company Number: 2007BI004903

PATIENT
  Age: 51 Year
  Sex: Female

DRUGS (13)
  1. AVONEX [Suspect]
     Indication: MULTIPLE SCLEROSIS
     Dosage: 30 UG; QW; IM
     Route: 030
     Dates: start: 20070206
  2. ADVAIR DISKUS 100/50 [Concomitant]
  3. AMARYL [Concomitant]
  4. HUMULIN R [Concomitant]
  5. HYDRALAZINE HCL [Concomitant]
  6. ISOSORBIDE MONONITRATE [Concomitant]
  7. LASIX [Concomitant]
  8. NEXIUM [Concomitant]
  9. PLAVIX [Concomitant]
  10. COUMADIN [Concomitant]
  11. VYTORIN [Concomitant]
  12. BENAZEPRIL HYDROCHLORIDE [Concomitant]
  13. ZANAFLEX [Concomitant]

REACTIONS (4)
  - CARDIAC DISORDER [None]
  - CARDIAC FAILURE CONGESTIVE [None]
  - LUNG DISORDER [None]
  - RENAL DISORDER [None]
